FAERS Safety Report 14204336 (Version 1)
Quarter: 2017Q4

REPORT INFORMATION
  Report Type: Spontaneous
  Country: CD (occurrence: CD)
  Receive Date: 20171120
  Receipt Date: 20171120
  Transmission Date: 20180321
  Serious: Yes (Death, Hospitalization, Other)
  Sender: FDA-Public Use
  Company Number: CD-JNJFOC-20171111479

PATIENT
  Age: 18 Year
  Sex: Male
  Weight: 42 kg

DRUGS (4)
  1. BEDAQUILINE [Suspect]
     Active Substance: BEDAQUILINE
     Indication: TUBERCULOSIS
     Dosage: FOR 2 WEEKS
     Route: 048
     Dates: start: 20170112, end: 20170712
  2. BEDAQUILINE [Suspect]
     Active Substance: BEDAQUILINE
     Indication: TUBERCULOSIS
     Route: 048
  3. BEDAQUILINE [Suspect]
     Active Substance: BEDAQUILINE
     Indication: PULMONARY TUBERCULOSIS
     Route: 048
  4. BEDAQUILINE [Suspect]
     Active Substance: BEDAQUILINE
     Indication: PULMONARY TUBERCULOSIS
     Dosage: FOR 2 WEEKS
     Route: 048
     Dates: start: 20170112, end: 20170712

REACTIONS (6)
  - Depression [Unknown]
  - Death [Fatal]
  - General physical health deterioration [Unknown]
  - Cardiac failure [Unknown]
  - Pulmonary arterial hypertension [Not Recovered/Not Resolved]
  - Cardio-respiratory distress [Not Recovered/Not Resolved]

NARRATIVE: CASE EVENT DATE: 201703
